FAERS Safety Report 5006328-9 (Version None)
Quarter: 2006Q2

REPORT INFORMATION
  Report Type: 
  Country: None (occurrence: None)
  Receive Date: 20060519
  Receipt Date: 20060222
  Transmission Date: 20061013
  Serious: No
  Sender: FDA-Public Use
  Company Number: PHMT2006CA00758

PATIENT
  Sex: Female
  Weight: 61.224 kg

DRUGS (2)
  1. VOLTAREN [Suspect]
     Indication: PAIN
     Dosage: 75 MG, BID
     Route: 048
     Dates: start: 20050121, end: 20050707
  2. PARIET [Concomitant]
     Dosage: 2 TABS QD
     Route: 048

REACTIONS (1)
  - VISUAL DISTURBANCE [None]
